FAERS Safety Report 7451766-8 (Version None)
Quarter: 2011Q2

REPORT INFORMATION
  Report Type: 
  Country: None (occurrence: None)
  Receive Date: 20110502
  Receipt Date: 20100522
  Transmission Date: 20111010
  Serious: No
  Sender: FDA-Public Use
  Company Number: US-ASTRAZENECA-2010SE23846

PATIENT
  Age: 20305 Day
  Sex: Female
  Weight: 81.6 kg

DRUGS (7)
  1. SEROQUEL [Concomitant]
     Indication: BIPOLAR DISORDER
  2. NEXIUM [Suspect]
     Indication: GASTROOESOPHAGEAL REFLUX DISEASE
     Route: 048
     Dates: start: 20100521
  3. CELEXA [Concomitant]
     Indication: DEPRESSION
  4. SENOFIBRATE [Concomitant]
     Indication: HYPOCHOLESTEROLAEMIA
  5. OXYBUTYNIN [Concomitant]
     Indication: HYPERTONIC BLADDER
  6. PRAVASTATIN [Concomitant]
     Indication: HYPOCHOLESTEROLAEMIA
  7. NABUMETONE [Concomitant]
     Indication: ARTHRITIS

REACTIONS (6)
  - GASTROOESOPHAGEAL REFLUX DISEASE [None]
  - DRUG INEFFECTIVE [None]
  - MUSCLE SPASMS [None]
  - CHOLECYSTITIS [None]
  - ABDOMINAL PAIN UPPER [None]
  - GALLBLADDER ENLARGEMENT [None]
